FAERS Safety Report 20038402 (Version 2)
Quarter: 2021Q4

REPORT INFORMATION
  Report Type: Spontaneous
  Country: US (occurrence: None)
  Receive Date: 20211105
  Receipt Date: 20211119
  Transmission Date: 20220303
  Serious: No
  Sender: FDA-Public Use
  Company Number: 2021A792473

PATIENT
  Sex: Female
  Weight: 80.7 kg

DRUGS (1)
  1. BUDESONIDE\FORMOTEROL\GLYCOPYRRONIUM [Suspect]
     Active Substance: BUDESONIDE\FORMOTEROL\GLYCOPYRRONIUM
     Indication: Chronic obstructive pulmonary disease
     Dosage: 160/7.2/5.0MCG, 2 PUFFS IN MORNING AND 2 PUFFS IN EVENING
     Route: 055
     Dates: start: 20211006

REACTIONS (3)
  - Malaise [Unknown]
  - Wrong technique in device usage process [Unknown]
  - Device delivery system issue [Unknown]
